FAERS Safety Report 8570328-2 (Version None)
Quarter: 2012Q3

REPORT INFORMATION
  Report Type: 
  Country: None (occurrence: None)
  Receive Date: 20120803
  Receipt Date: 20120801
  Transmission Date: 20120928
  Serious: Yes (Death)
  Sender: FDA-Public Use
  Company Number: AU-B.I. PHARMACEUTICALS,INC./RIDGEFIELD-2012-AU-01342AU

PATIENT
  Sex: Male

DRUGS (7)
  1. LOPID [Concomitant]
  2. LANOXIN [Concomitant]
  3. DIAMICRON [Concomitant]
  4. CARVEDILOL [Concomitant]
  5. PRADAXA [Suspect]
     Dosage: 220 MG
  6. IRBESARTAN + HYDROCHLOROTHIAZIDE [Concomitant]
  7. METFORMIN HCL [Concomitant]

REACTIONS (1)
  - ARRHYTHMIA [None]
